FAERS Safety Report 13765272 (Version 1)
Quarter: 2017Q3

REPORT INFORMATION
  Report Type: Spontaneous
  Country: HR (occurrence: HR)
  Receive Date: 20170718
  Receipt Date: 20170718
  Transmission Date: 20171127
  Serious: Yes (Other)
  Sender: FDA-Public Use
  Company Number: HR-PFIZER INC-2017306649

PATIENT
  Age: 29 Year
  Sex: Female

DRUGS (3)
  1. ALPRAZOLAM. [Suspect]
     Active Substance: ALPRAZOLAM
     Dosage: ONE BLISTER
     Route: 048
     Dates: start: 20170504
  2. ESCITALOPRAM [Suspect]
     Active Substance: ESCITALOPRAM OXALATE
     Dosage: TWO BLISTERS
     Route: 048
     Dates: start: 20170504
  3. FLUZEPAM (FLURAZEPAM HYDROCHLORIDE) [Suspect]
     Active Substance: FLURAZEPAM HYDROCHLORIDE
     Dosage: TWO BLISTERS
     Route: 048
     Dates: start: 20170504

REACTIONS (3)
  - Somnolence [Unknown]
  - Suicide attempt [Unknown]
  - Intentional overdose [Unknown]

NARRATIVE: CASE EVENT DATE: 20170504
